FAERS Safety Report 5206687-8 (Version None)
Quarter: 2007Q1

REPORT INFORMATION
  Report Type: 
  Country: None (occurrence: None)
  Receive Date: 20070109
  Receipt Date: 20061122
  Transmission Date: 20070707
  Serious: Yes (Death)
  Sender: FDA-Public Use
  Company Number: JPKYO-S-20060040

PATIENT
  Age: 81 Year
  Sex: Male

DRUGS (7)
  1. NAVELBINE [Suspect]
     Indication: LUNG CARCINOMA CELL TYPE UNSPECIFIED STAGE III
     Dosage: 30 MG IV
     Route: 042
     Dates: start: 20060522, end: 20061002
  2. CARBOCISTEINE [Concomitant]
  3. RESPLEN [Concomitant]
  4. CLARITHROMYCIN [Concomitant]
  5. SENNOSIDE [Concomitant]
  6. LENDORMIN [Concomitant]
  7. LEVOFLOXACIN [Concomitant]

REACTIONS (1)
  - INTERSTITIAL LUNG DISEASE [None]
